FAERS Safety Report 18219344 (Version 1)
Quarter: 2020Q3

REPORT INFORMATION
  Report Type: Spontaneous
  Country: MX (occurrence: MX)
  Receive Date: 20200901
  Receipt Date: 20200901
  Transmission Date: 20201103
  Serious: Yes (Other)
  Sender: FDA-Public Use
  Company Number: MX-009507513-2008MEX002673

PATIENT
  Age: 40 Year
  Sex: Male

DRUGS (1)
  1. KEYTRUDA [Suspect]
     Active Substance: PEMBROLIZUMAB
     Indication: ORAL CAVITY CANCER METASTATIC

REACTIONS (8)
  - Transplant rejection [Unknown]
  - Speech disorder [Unknown]
  - Colitis [Unknown]
  - Product use issue [Unknown]
  - Circumstance or information capable of leading to medication error [Unknown]
  - Erythema [Unknown]
  - Pneumonitis [Unknown]
  - Inflammation [Unknown]

NARRATIVE: CASE EVENT DATE: 201910
